FAERS Safety Report 12333406 (Version 1)
Quarter: 2016Q2

REPORT INFORMATION
  Report Type: Spontaneous
  Country: US (occurrence: US)
  Receive Date: 20160504
  Receipt Date: 20160504
  Transmission Date: 20160815
  Serious: No
  Sender: FDA-Public Use
  Company Number: US-BAYER-2016-081361

PATIENT
  Age: 65 Year

DRUGS (11)
  1. POTASSIUM [Concomitant]
     Active Substance: POTASSIUM
  2. ALEVE [Suspect]
     Active Substance: NAPROXEN SODIUM
  3. SPIRIVA [Concomitant]
     Active Substance: TIOTROPIUM BROMIDE MONOHYDRATE
     Dosage: 1 DF, QD
  4. SENNA [Concomitant]
     Active Substance: SENNA LEAF\SENNOSIDES\SENNOSIDES A AND B
  5. SUTENT [Concomitant]
     Active Substance: SUNITINIB MALATE
     Dosage: UNK UNK, QD
     Route: 048
  6. COZAAR [Concomitant]
     Active Substance: LOSARTAN POTASSIUM
     Dosage: 1 DF, QD
  7. FENTANYL. [Concomitant]
     Active Substance: FENTANYL
     Dosage: 1 DF, EVERY THREE DAYS
  8. COREG [Concomitant]
     Active Substance: CARVEDILOL
     Dosage: 1 DF, BID
  9. CALCIUM [Concomitant]
     Active Substance: CALCIUM
  10. ALBUTEROL. [Concomitant]
     Active Substance: ALBUTEROL
     Dosage: UNK UNK, Q4HR  AS NEEDED
  11. ASPIRIN. [Concomitant]
     Active Substance: ASPIRIN
     Dosage: UNK UNK, QD

REACTIONS (4)
  - Dyspnoea [None]
  - Rash [None]
  - Drug hypersensitivity [None]
  - Swelling [None]

NARRATIVE: CASE EVENT DATE: 20140728
